FAERS Safety Report 9698479 (Version 2)
Quarter: 2013Q4

REPORT INFORMATION
  Report Type: Spontaneous
  Country: FR (occurrence: FR)
  Receive Date: 20131120
  Receipt Date: 20131120
  Transmission Date: 20140711
  Serious: Yes (Hospitalization)
  Sender: FDA-Public Use
  Company Number: FR-TEVA-388504ISR

PATIENT
  Age: 22 Year
  Sex: Female
  Weight: 40 kg

DRUGS (1)
  1. COPAXONE [Suspect]
     Dates: start: 20130218, end: 20130417

REACTIONS (9)
  - Appendicitis [Unknown]
  - Injection site paraesthesia [Unknown]
  - Injection site pain [Unknown]
  - Injection site erythema [Recovered/Resolved]
  - Anxiety [Unknown]
  - Injection site pain [Unknown]
  - Injection site pain [Unknown]
  - Obsessive-compulsive disorder [Unknown]
  - Injection site swelling [Recovered/Resolved]
